FAERS Safety Report 20282540 (Version 1)
Quarter: 2022Q1

REPORT INFORMATION
  Report Type: Spontaneous
  Country: US (occurrence: None)
  Receive Date: 20220101
  Receipt Date: 20220101
  Transmission Date: 20220424
  Serious: Yes (Hospitalization)
  Sender: FDA-Public Use
  Company Number: None

PATIENT
  Age: 73 Year
  Sex: Male
  Weight: 81.65 kg

DRUGS (1)
  1. PEMBROLIZUMAB [Suspect]
     Active Substance: PEMBROLIZUMAB
     Indication: Malignant melanoma
     Dosage: OTHER FREQUENCY : OTHER;?
     Route: 042
     Dates: start: 20191106, end: 20200408

REACTIONS (11)
  - Confusional state [None]
  - Asthenia [None]
  - Pyrexia [None]
  - Hypotension [None]
  - Tachycardia [None]
  - Acute kidney injury [None]
  - Hyponatraemia [None]
  - Hypokalaemia [None]
  - Mental impairment [None]
  - Lactic acidosis [None]
  - Hypothyroidism [None]

NARRATIVE: CASE EVENT DATE: 20200402
